FAERS Safety Report 9036415 (Version 1)
Quarter: 2013Q1

REPORT INFORMATION
  Report Type: Spontaneous
  Country: US (occurrence: None)
  Receive Date: 20130123
  Receipt Date: 20130123
  Transmission Date: 20140127
  Serious: Yes (Disabling)
  Sender: FDA-Public Use
  Company Number: None

PATIENT
  Age: 59 Year
  Sex: Male
  Weight: 99.79 kg

DRUGS (6)
  1. VYTORIN [Suspect]
     Dates: start: 20061020
  2. SIMVASTATIN [Suspect]
     Dates: start: 2010
  3. CRESTOR [Suspect]
     Dates: start: 200810
  4. ZETIA [Suspect]
     Dates: start: 2012
  5. PRAVACHOL [Suspect]
     Dates: start: 2009
  6. NIACIN [Suspect]
     Dates: start: 2012

REACTIONS (5)
  - Fatigue [None]
  - Muscular weakness [None]
  - Hepatic enzyme increased [None]
  - Hyperhidrosis [None]
  - Burning sensation [None]
